FAERS Safety Report 11897687 (Version 1)
Quarter: 2016Q1

REPORT INFORMATION
  Report Type: Spontaneous
  Country: US (occurrence: None)
  Receive Date: 20160106
  Receipt Date: 20160106
  Transmission Date: 20160526
  Serious: Yes (Other)
  Sender: FDA-Public Use
  Company Number: None

PATIENT
  Age: 78 Year
  Sex: Male
  Weight: 81.7 kg

DRUGS (1)
  1. CEPHALEXIN. [Suspect]
     Active Substance: CEPHALEXIN
     Indication: INFECTION
     Dates: start: 20150531, end: 20150602

REACTIONS (3)
  - Rash [None]
  - Pharyngeal oedema [None]
  - Lip swelling [None]

NARRATIVE: CASE EVENT DATE: 20150603
